FAERS Safety Report 9845460 (Version 1)
Quarter: 2014Q1

REPORT INFORMATION
  Report Type: Spontaneous
  Country: US (occurrence: None)
  Receive Date: 20140123
  Receipt Date: 20140123
  Transmission Date: 20141002
  Serious: Yes (Other)
  Sender: FDA-Public Use
  Company Number: KAD201401-000059

PATIENT
  Age: 28 Year
  Sex: Female

DRUGS (4)
  1. ANASTROZOLE (ANASTROZOLE) [Suspect]
     Indication: BREAST CANCER STAGE II
  2. PACLITAXEL (PACLITAXEL) [Suspect]
     Indication: BREAST CANCER STAGE II
  3. CYCLOPHOSPHAMIDE (CYCLOPHOSPHAMIDE) [Suspect]
     Indication: BREAST CANCER STAGE II
  4. LUPRON [Suspect]
     Indication: BREAST CANCER STAGE II
     Dosage: 3.75 MG

REACTIONS (4)
  - Maternal exposure before pregnancy [None]
  - Amenorrhoea [None]
  - Breast cancer recurrent [None]
  - Pregnancy [None]
